FAERS Safety Report 4985467-2 (Version None)
Quarter: 2006Q2

REPORT INFORMATION
  Report Type: 
  Country: None (occurrence: None)
  Receive Date: 20060428
  Receipt Date: 20050321
  Transmission Date: 20061013
  Serious: No
  Sender: FDA-Public Use
  Company Number: US-GLAXOSMITHKLINE-A0550690A

PATIENT
  Sex: Female

DRUGS (3)
  1. FLONASE [Suspect]
     Indication: DRUG USE FOR UNKNOWN INDICATION
  2. SYNTHROID [Concomitant]
  3. ESTRADIOL [Concomitant]

REACTIONS (2)
  - ANXIETY [None]
  - PANIC REACTION [None]
